FAERS Safety Report 4949027-1 (Version None)
Quarter: 2006Q1

REPORT INFORMATION
  Report Type: 
  Country: None (occurrence: None)
  Receive Date: 20060321
  Receipt Date: 20060227
  Transmission Date: 20060701
  Serious: Yes (Other)
  Sender: FDA-Public Use
  Company Number: US-GLAXOSMITHKLINE-A0595306A

PATIENT
  Age: 52 Year
  Sex: Female
  Weight: 69.5 kg

DRUGS (8)
  1. ADVAIR DISKUS 100/50 [Suspect]
     Indication: ASTHMA
     Dosage: 1PUFF TWICE PER DAY
     Route: 055
     Dates: start: 20050101, end: 20060101
  2. ALBUTEROL [Concomitant]
  3. RANITIDINE [Concomitant]
  4. ZYRTEC [Concomitant]
  5. ASPIRIN [Concomitant]
  6. FOLIC ACID [Concomitant]
  7. FISH OIL [Concomitant]
  8. ESTROVEN [Concomitant]

REACTIONS (3)
  - ASTHMA [None]
  - ORAL CANDIDIASIS [None]
  - ORAL MUCOSAL BLISTERING [None]
